FAERS Safety Report 6506716-5 (Version None)
Quarter: 2009Q4

REPORT INFORMATION
  Report Type: 
  Country: None (occurrence: None)
  Receive Date: 20091221
  Receipt Date: 20091211
  Transmission Date: 20100525
  Serious: Yes (Hospitalization)
  Sender: FDA-Public Use
  Company Number: US-ASTRAZENECA-2009SE14223

PATIENT
  Age: 42 Year
  Sex: Male
  Weight: 97.5 kg

DRUGS (7)
  1. SEROQUEL [Suspect]
     Indication: SLEEP DISORDER
     Route: 048
     Dates: start: 20050101
  2. SEROQUEL [Suspect]
     Indication: BEHAVIOURAL AND PSYCHIATRIC SYMPTOMS OF DEMENTIA
     Route: 048
     Dates: start: 20050101
  3. SEROQUEL [Suspect]
     Route: 048
  4. SEROQUEL [Suspect]
     Route: 048
  5. LAMICTAL [Concomitant]
     Indication: CONVULSION
  6. GEODON [Concomitant]
  7. PROPRANOLOL [Concomitant]

REACTIONS (8)
  - ABNORMAL BEHAVIOUR [None]
  - ALANINE AMINOTRANSFERASE INCREASED [None]
  - EXERCISE LACK OF [None]
  - LOWER LIMB FRACTURE [None]
  - NIGHTMARE [None]
  - PROTEIN TOTAL DECREASED [None]
  - SOMNOLENCE [None]
  - WEIGHT INCREASED [None]
